FAERS Safety Report 16872926 (Version 1)
Quarter: 2019Q4

REPORT INFORMATION
  Report Type: Spontaneous
  Country: US (occurrence: US)
  Receive Date: 20191001
  Receipt Date: 20191001
  Transmission Date: 20200122
  Serious: No
  Sender: FDA-Public Use
  Company Number: US-CURIUM-200900402

PATIENT
  Age: 68 Year
  Sex: Male

DRUGS (3)
  1. ULTRA-TECHNEKOW DTE [Suspect]
     Active Substance: TECHNETIUM TC-99M SODIUM PERTECHNETATE
     Dosage: 2 MCI, SINGLE??NUMBER OF SEPARATE DOSAGES: 1
     Route: 025
     Dates: start: 20091014, end: 20091014
  2. TECHNESCAN MAG3 [Suspect]
     Active Substance: TECHNETIUM TC-99M TIATIDE
     Dosage: UNK
     Route: 025
     Dates: start: 20091014, end: 20091014
  3. TECHNESCAN LYOMAA (TECHNETIUM TC-99M ALBUMIN AGGREGATED) [Suspect]
     Active Substance: TECHNETIUM TC-99M ALBUMIN AGGREGATED

REACTIONS (3)
  - Wrong product administered [Recovered/Resolved]
  - Radioisotope scan abnormal [Recovered/Resolved]
  - Product dispensing error [Recovered/Resolved]

NARRATIVE: CASE EVENT DATE: 20091014
